FAERS Safety Report 21572014 (Version 1)
Quarter: 2022Q4

REPORT INFORMATION
  Report Type: Spontaneous
  Country: BR (occurrence: BR)
  Receive Date: 20221109
  Receipt Date: 20221109
  Transmission Date: 20230113
  Serious: Yes (Other)
  Sender: FDA-Public Use
  Company Number: BR-CHEPLA-2022009887

PATIENT
  Sex: Male
  Weight: 69 kg

DRUGS (7)
  1. CLONAZEPAM [Suspect]
     Active Substance: CLONAZEPAM
     Indication: Dizziness
     Dosage: SPORADICALLY, BEFORE SLEEPING
     Route: 048
     Dates: start: 2018
  2. CLONAZEPAM [Suspect]
     Active Substance: CLONAZEPAM
     Indication: Nervousness
     Dosage: SPORADICALLY, BEFORE SLEEPING
     Route: 048
     Dates: start: 2018
  3. CLONAZEPAM [Suspect]
     Active Substance: CLONAZEPAM
     Indication: Headache
     Dosage: SPORADICALLY, BEFORE SLEEPING
     Route: 048
     Dates: start: 2018
  4. AMLODIPINE BESYLATE [Concomitant]
     Active Substance: AMLODIPINE BESYLATE
     Dosage: DAILY (MORNING)??DAILY DOSE: 1 DOSAGE FORM
     Route: 048
  5. BISOPROLOL FUMARATE [Concomitant]
     Active Substance: BISOPROLOL FUMARATE
     Indication: Arrhythmia
     Dosage: DAILY (MORNING)?, APPROXIMATELY 2015?DAILY DOSE: 1 DOSAGE FORM
     Route: 048
  6. ZART H [Concomitant]
     Indication: Hypertension
     Dosage: DAILY (MORNING)?DAILY DOSE: 1 DOSAGE FORM
     Route: 048
     Dates: start: 2010
  7. XARELTO [Concomitant]
     Active Substance: RIVAROXABAN
     Indication: Anticoagulant therapy
     Dosage: DAILY (MORNING)?DAILY DOSE: 1 DOSAGE FORM
     Route: 048
     Dates: start: 2021

REACTIONS (3)
  - Diabetes mellitus [Not Recovered/Not Resolved]
  - Blood pressure decreased [Unknown]
  - Product use in unapproved indication [Not Recovered/Not Resolved]

NARRATIVE: CASE EVENT DATE: 20210101
